FAERS Safety Report 4429906-4 (Version None)
Quarter: 2004Q3

REPORT INFORMATION
  Report Type: 
  Country: None (occurrence: None)
  Receive Date: 20040817
  Receipt Date: 20040817
  Transmission Date: 20050211
  Serious: Yes (Other)
  Sender: FDA-Public Use
  Company Number: None

PATIENT
  Age: 19 Year
  Sex: Female
  Weight: 57.6068 kg

DRUGS (2)
  1. CHLOROQUINE PHOSPHATE [Suspect]
     Indication: MALARIA PROPHYLAXIS
     Dosage: ORAL, WEEKLY
     Route: 048
     Dates: start: 20040628
  2. CHLOROQUINE PHOSPHATE [Suspect]
     Indication: MALARIA PROPHYLAXIS
     Dosage: ORAL, WEEKLY
     Route: 048
     Dates: start: 20040702

REACTIONS (5)
  - ANXIETY [None]
  - HEADACHE [None]
  - MEMORY IMPAIRMENT [None]
  - NAUSEA [None]
  - PANIC DISORDER [None]
